FAERS Safety Report 9913244 (Version 2)
Quarter: 2014Q1

REPORT INFORMATION
  Report Type: Spontaneous
  Country: US (occurrence: None)
  Receive Date: 20140214
  Receipt Date: 20140306
  Transmission Date: 20141002
  Serious: Yes (Other)
  Sender: FDA-Public Use
  Company Number: BR14-035-AE

PATIENT
  Age: 53 Year
  Sex: Female
  Weight: 69.4 kg

DRUGS (1)
  1. OXY/APAP [Suspect]
     Indication: PAIN
     Dosage: 3 TABLETS A DAY, ORAL
     Route: 048
     Dates: start: 20131220, end: 20131222

REACTIONS (11)
  - Throat tightness [None]
  - Dysphagia [None]
  - Headache [None]
  - Product quality issue [None]
  - Product substitution issue [None]
  - Malaise [None]
  - Dry mouth [None]
  - Nausea [None]
  - Tooth disorder [None]
  - Back pain [None]
  - Generalised anxiety disorder [None]
